FAERS Safety Report 7763740-2 (Version None)
Quarter: 2011Q3

REPORT INFORMATION
  Report Type: 
  Country: None (occurrence: None)
  Receive Date: 20110921
  Receipt Date: 20090717
  Transmission Date: 20111222
  Serious: Yes (Hospitalization)
  Sender: FDA-Public Use
  Company Number: DE-RANBAXY-2009US-46685

PATIENT

DRUGS (3)
  1. SORICLAR [Suspect]
     Indication: HELICOBACTER INFECTION
     Dosage: 1 GM, UNK
     Route: 048
     Dates: start: 20090325, end: 20090331
  2. PEPTAZOL [Suspect]
     Indication: HELICOBACTER INFECTION
     Dosage: 40 MG, UNK
     Route: 048
     Dates: start: 20090325, end: 20090325
  3. AMOXICILLIN [Suspect]
     Indication: HELICOBACTER INFECTION
     Dosage: 2 GM,  UNK
     Route: 048
     Dates: start: 20090325, end: 20090331

REACTIONS (3)
  - URTICARIA [None]
  - ERYTHEMA [None]
  - OEDEMA [None]
